FAERS Safety Report 8148364 (Version 3)
Quarter: 2014Q4

REPORT INFORMATION
  Report Type: Spontaneous
  Country: US (occurrence: US)
  Receive Date: 20110922
  Receipt Date: 20141024
  Transmission Date: 20150529
  Serious: Yes (Hospitalization, Other)
  Sender: FDA-Public Use
  Company Number: US-ASTRAZENECA-2010SE42450

PATIENT
  Age: 51 Year
  Sex: Female
  Weight: 68.5 kg

DRUGS (21)
  1. SEROQUEL [Suspect]
     Active Substance: QUETIAPINE FUMARATE
     Indication: PANIC ATTACK
     Route: 048
     Dates: start: 2006
  2. SEROQUEL [Suspect]
     Active Substance: QUETIAPINE FUMARATE
     Indication: BIPOLAR DISORDER
     Route: 048
     Dates: start: 2007
  3. SEROQUEL [Suspect]
     Active Substance: QUETIAPINE FUMARATE
     Indication: PANIC ATTACK
     Route: 048
     Dates: start: 2007
  4. SEROQUEL [Suspect]
     Active Substance: QUETIAPINE FUMARATE
     Indication: SCHIZOAFFECTIVE DISORDER
     Route: 048
     Dates: start: 2008
  5. SEROQUEL [Suspect]
     Active Substance: QUETIAPINE FUMARATE
     Indication: INSOMNIA
     Route: 048
     Dates: start: 2006
  6. SEROQUEL [Suspect]
     Active Substance: QUETIAPINE FUMARATE
     Indication: INSOMNIA
     Route: 048
     Dates: start: 2007
  7. SEROQUEL [Suspect]
     Active Substance: QUETIAPINE FUMARATE
     Indication: BIPOLAR DISORDER
     Route: 048
     Dates: start: 2008
  8. SEROQUEL [Suspect]
     Active Substance: QUETIAPINE FUMARATE
     Indication: PANIC ATTACK
     Route: 048
     Dates: start: 2008
  9. SEROQUEL [Suspect]
     Active Substance: QUETIAPINE FUMARATE
     Indication: PANIC ATTACK
     Route: 048
     Dates: start: 2010
  10. VALIUM [Concomitant]
     Active Substance: DIAZEPAM
  11. SEROQUEL [Suspect]
     Active Substance: QUETIAPINE FUMARATE
     Indication: BIPOLAR DISORDER
     Route: 048
     Dates: start: 2006
  12. SEROQUEL [Suspect]
     Active Substance: QUETIAPINE FUMARATE
     Indication: SCHIZOAFFECTIVE DISORDER
     Route: 048
     Dates: start: 2007
  13. SEROQUEL [Suspect]
     Active Substance: QUETIAPINE FUMARATE
     Indication: SCHIZOAFFECTIVE DISORDER
     Route: 048
  14. SEROQUEL [Suspect]
     Active Substance: QUETIAPINE FUMARATE
     Indication: INSOMNIA
     Route: 048
  15. SEROQUEL [Suspect]
     Active Substance: QUETIAPINE FUMARATE
     Indication: INSOMNIA
     Route: 048
     Dates: start: 2008
  16. SEROQUEL [Suspect]
     Active Substance: QUETIAPINE FUMARATE
     Indication: SCHIZOAFFECTIVE DISORDER
     Route: 048
     Dates: start: 2006
  17. SEROQUEL [Suspect]
     Active Substance: QUETIAPINE FUMARATE
     Indication: BIPOLAR DISORDER
     Route: 048
  18. SEROQUEL [Suspect]
     Active Substance: QUETIAPINE FUMARATE
     Indication: PANIC ATTACK
     Route: 048
  19. SEROQUEL [Suspect]
     Active Substance: QUETIAPINE FUMARATE
     Indication: BIPOLAR DISORDER
     Route: 048
     Dates: start: 2010
  20. SEROQUEL [Suspect]
     Active Substance: QUETIAPINE FUMARATE
     Indication: SCHIZOAFFECTIVE DISORDER
     Route: 048
     Dates: start: 2010
  21. SEROQUEL [Suspect]
     Active Substance: QUETIAPINE FUMARATE
     Indication: INSOMNIA
     Route: 048
     Dates: start: 2010

REACTIONS (21)
  - Depression [Unknown]
  - Panic disorder [Unknown]
  - Vomiting [Unknown]
  - Dyspnoea [Unknown]
  - Diarrhoea [Unknown]
  - Mental disorder [Unknown]
  - Product use issue [Unknown]
  - Intentional product misuse [Unknown]
  - Feeling abnormal [Unknown]
  - Dyskinesia [Unknown]
  - Chronic obstructive pulmonary disease [Unknown]
  - Tremor [Unknown]
  - Malaise [Unknown]
  - Weight increased [Unknown]
  - Tooth fracture [Unknown]
  - Colitis [Unknown]
  - Withdrawal syndrome [Unknown]
  - Cardiac disorder [Unknown]
  - Nervousness [Unknown]
  - Nausea [Unknown]
  - Drug dose omission [Unknown]

NARRATIVE: CASE EVENT DATE: 2010
